FAERS Safety Report 20453645 (Version 1)
Quarter: 2022Q1

REPORT INFORMATION
  Report Type: Spontaneous
  Country: NL (occurrence: NL)
  Receive Date: 20220210
  Receipt Date: 20220210
  Transmission Date: 20220423
  Serious: Yes (Other)
  Sender: FDA-Public Use
  Company Number: None

PATIENT
  Sex: Female

DRUGS (2)
  1. QUETIAPINE [Suspect]
     Active Substance: QUETIAPINE
     Indication: Sleep disorder
     Dosage: 25 MILLIGRAM DAILY; 1 TABLET FOR THE NIGHT, QUETIAPINE TABLET FO  25MG / BRAND NAME NOT SPECIFIED, T
     Route: 065
     Dates: start: 20211230
  2. METOPROLOL SUCCINATE [Concomitant]
     Active Substance: METOPROLOL SUCCINATE
     Dosage: 25 MG, METOPROLOL TABLET MGA  25MG (SUCCINAAT) / BRAND NAME NOT SPECIFIED, THERAPY START AND END DAT

REACTIONS (2)
  - Hallucination [Not Recovered/Not Resolved]
  - Headache [Not Recovered/Not Resolved]
